FAERS Safety Report 6649558-2 (Version None)
Quarter: 2010Q1

REPORT INFORMATION
  Report Type: 
  Country: None (occurrence: None)
  Receive Date: 20100324
  Receipt Date: 20100324
  Transmission Date: 20100710
  Serious: Yes (Life-Threatening)
  Sender: FDA-Public Use
  Company Number: None

PATIENT
  Age: 40 Year
  Sex: Male

DRUGS (2)
  1. VANCOMYCIN [Suspect]
     Indication: OPEN REDUCTION OF FRACTURE
     Dosage: IV
     Route: 042
     Dates: start: 20090801, end: 20090917
  2. VANCOMYCIN [Suspect]
     Indication: STAPHYLOCOCCAL INFECTION
     Dosage: IV
     Route: 042
     Dates: start: 20090801, end: 20090917

REACTIONS (1)
  - STEVENS-JOHNSON SYNDROME [None]
